FAERS Safety Report 7970985-5 (Version None)
Quarter: 2011Q4

REPORT INFORMATION
  Report Type: 
  Country: None (occurrence: None)
  Receive Date: 20111212
  Receipt Date: 20110214
  Transmission Date: 20120403
  Serious: No
  Sender: FDA-Public Use
  Company Number: US-COVIDIEN/TYCO HEALTHCARE/MALLINCKRODT-T201100509

PATIENT
  Sex: Male

DRUGS (4)
  1. MOTRIN [Suspect]
  2. VERAPAMIL [Suspect]
  3. OPTIMARK [Suspect]
     Indication: NUCLEAR MAGNETIC RESONANCE IMAGING
     Dosage: 20 ML, SINGLE
     Route: 042
     Dates: start: 20110201, end: 20110201
  4. SCOPOLAMINE [Suspect]

REACTIONS (2)
  - PRURITUS GENERALISED [None]
  - SKIN BURNING SENSATION [None]
